FAERS Safety Report 9885585 (Version 2)
Quarter: 2014Q1

REPORT INFORMATION
  Report Type: Spontaneous
  Country: US (occurrence: US)
  Receive Date: 20140210
  Receipt Date: 20140228
  Transmission Date: 20141002
  Serious: Yes (Hospitalization)
  Sender: FDA-Public Use
  Company Number: US-ELI_LILLY_AND_COMPANY-US201401011943

PATIENT
  Age: 39 Year
  Sex: Male

DRUGS (2)
  1. GEMCITABINE HYDROCHLORIDE [Suspect]
     Indication: SARCOMA METASTATIC
     Route: 065
  2. VANCOMYCIN HYDROCHLORIDE [Concomitant]
     Indication: CELLULITIS
     Dosage: 1 DF, SINGLE
     Route: 065

REACTIONS (1)
  - Lymphoedema [Recovered/Resolved]
